FAERS Safety Report 17671040 (Version 3)
Quarter: 2020Q2

REPORT INFORMATION
  Report Type: Spontaneous
  Country: DE (occurrence: DE)
  Receive Date: 20200415
  Receipt Date: 20200602
  Transmission Date: 20200713
  Serious: Yes (Life-Threatening, Hospitalization, Other)
  Sender: FDA-Public Use
  Company Number: DE-MYLANLABS-2020M1037528

PATIENT
  Age: 31 Year
  Sex: Male

DRUGS (2)
  1. IBUPROFEN. [Interacting]
     Active Substance: IBUPROFEN
     Dosage: 1 DOSAGE FORM (PREVIOUS EVENING AND AN HOUR EARLIER TO HONEY INTAKE)
     Route: 048
     Dates: start: 201903, end: 201903
  2. IBUPROFEN. [Suspect]
     Active Substance: IBUPROFEN
     Indication: ANALGESIC INTERVENTION SUPPORTIVE THERAPY
     Dosage: 400 MILLIGRAM

REACTIONS (2)
  - Anaphylactic shock [Recovered/Resolved]
  - Drug interaction [Unknown]

NARRATIVE: CASE EVENT DATE: 201903
